FAERS Safety Report 20688859 (Version 6)
Quarter: 2022Q4

REPORT INFORMATION
  Report Type: Report from Study
  Country: CA (occurrence: CA)
  Receive Date: 20220408
  Receipt Date: 20221225
  Transmission Date: 20230113
  Serious: Yes (Other)
  Sender: FDA-Public Use
  Company Number: CA-JNJFOC-20220401887

PATIENT
  Age: 62 Year
  Sex: Female
  Weight: 83 kg

DRUGS (5)
  1. REMICADE [Suspect]
     Active Substance: INFLIXIMAB
     Indication: Behcet^s syndrome
     Dosage: FOLLOWED BY RECEIVED TREATMENT ON 03-DEC-2018
     Route: 042
     Dates: start: 20170316
  2. REMICADE [Suspect]
     Active Substance: INFLIXIMAB
     Route: 042
     Dates: start: 20181203
  3. IMURAN [Concomitant]
     Active Substance: AZATHIOPRINE
     Indication: Product used for unknown indication
     Route: 048
  4. IMURAN [Concomitant]
     Active Substance: AZATHIOPRINE
     Route: 048
     Dates: start: 2022
  5. TOZINAMERAN [Concomitant]
     Active Substance: TOZINAMERAN
     Indication: Product used for unknown indication
     Dosage: FULLY VACCINATED. ALL FOUR PFIZER.
     Route: 065

REACTIONS (12)
  - Pyoderma gangrenosum [Recovering/Resolving]
  - Behcet^s syndrome [Unknown]
  - Fall [Unknown]
  - Wrist fracture [Unknown]
  - Eye ulcer [Not Recovered/Not Resolved]
  - Skin ulcer [Not Recovered/Not Resolved]
  - Weight increased [Unknown]
  - Skin laceration [Unknown]
  - Joint swelling [Unknown]
  - Contusion [Unknown]
  - Drug ineffective for unapproved indication [Unknown]
  - Off label use [Unknown]

NARRATIVE: CASE EVENT DATE: 20170316
